FAERS Safety Report 23845194 (Version 2)
Quarter: 2025Q3

REPORT INFORMATION
  Report Type: Spontaneous
  Country: US (occurrence: US)
  Receive Date: 20240511
  Receipt Date: 20250715
  Transmission Date: 20251020
  Serious: No
  Sender: CIPLA
  Company Number: US-CIPLA LTD.-2023US05073

PATIENT

DRUGS (1)
  1. ALBUTEROL [Suspect]
     Active Substance: ALBUTEROL
     Indication: Asthma
     Dosage: 180 MICROGRAM, QID (2 PUFFS, EVERY 6 HOURS)
     Route: 065
     Dates: start: 202308

REACTIONS (4)
  - Illness [Unknown]
  - Respiratory tract congestion [Not Recovered/Not Resolved]
  - Incorrect dose administered by device [Unknown]
  - Product quality issue [Unknown]

NARRATIVE: CASE EVENT DATE: 20230801
